FAERS Safety Report 7517979-1 (Version None)
Quarter: 2011Q2

REPORT INFORMATION
  Report Type: 
  Country: None (occurrence: None)
  Receive Date: 20110531
  Receipt Date: 20110531
  Transmission Date: 20111010
  Serious: Yes (Other)
  Sender: FDA-Public Use
  Company Number: None

PATIENT
  Age: 32 Year
  Sex: Female
  Weight: 58.9676 kg

DRUGS (3)
  1. FLUOXETINE HCL [Suspect]
     Indication: ANXIETY
     Dosage: 20 MG 1 X DAY PO
     Route: 048
     Dates: start: 20110420, end: 20110530
  2. FLUOXETINE HCL [Suspect]
     Indication: OBSESSIVE-COMPULSIVE DISORDER
     Dosage: 20 MG 1 X DAY PO
     Route: 048
     Dates: start: 20110420, end: 20110530
  3. FLUOXETINE HCL [Suspect]
     Indication: DEPRESSION
     Dosage: 20 MG 1 X DAY PO
     Route: 048
     Dates: start: 20110420, end: 20110530

REACTIONS (7)
  - ANXIETY [None]
  - IMPAIRED WORK ABILITY [None]
  - PRODUCT SUBSTITUTION ISSUE [None]
  - ABNORMAL BEHAVIOUR [None]
  - OBSESSIVE-COMPULSIVE DISORDER [None]
  - DEPRESSION [None]
  - DRUG INEFFECTIVE [None]
